FAERS Safety Report 16434808 (Version 3)
Quarter: 2019Q3

REPORT INFORMATION
  Report Type: Spontaneous
  Country: US (occurrence: US)
  Receive Date: 20190614
  Receipt Date: 20190909
  Transmission Date: 20191004
  Serious: No
  Sender: FDA-Public Use
  Company Number: US-JNJFOC-20190540649

PATIENT
  Sex: Female
  Weight: 64.92 kg

DRUGS (8)
  1. DURAGESIC [Suspect]
     Active Substance: FENTANYL
     Indication: PAIN
     Route: 062
  2. DURAGESIC [Suspect]
     Active Substance: FENTANYL
     Route: 062
  3. DURAGESIC [Suspect]
     Active Substance: FENTANYL
     Route: 062
  4. FENTANYL. [Suspect]
     Active Substance: FENTANYL
     Indication: PAIN
     Route: 062
     Dates: start: 2002
  5. DURAGESIC [Suspect]
     Active Substance: FENTANYL
     Route: 062
  6. DURAGESIC [Suspect]
     Active Substance: FENTANYL
     Route: 062
  7. IODINE. [Suspect]
     Active Substance: IODINE
     Indication: PAIN
     Route: 065
     Dates: start: 2002
  8. DURAGESIC [Suspect]
     Active Substance: FENTANYL
     Route: 062

REACTIONS (5)
  - Product dose omission [Unknown]
  - Blister [Unknown]
  - Application site exfoliation [Unknown]
  - Application site erythema [Unknown]
  - Drug ineffective [Unknown]
